FAERS Safety Report 20369023 (Version 1)
Quarter: 2022Q1

REPORT INFORMATION
  Report Type: Spontaneous
  Country: DE (occurrence: DE)
  Receive Date: 20220124
  Receipt Date: 20220124
  Transmission Date: 20220424
  Serious: Yes (Hospitalization)
  Sender: FDA-Public Use
  Company Number: None

PATIENT
  Age: 55 Year
  Sex: Female

DRUGS (10)
  1. CARBOPLATIN [Suspect]
     Active Substance: CARBOPLATIN
     Indication: Product used for unknown indication
     Dosage: 660 MG, ONE TIME IN THIS CYCLE SOLUTION FOR INJECTION/INFUSION
     Route: 042
  2. ETOPOSIDE [Suspect]
     Active Substance: ETOPOSIDE
     Indication: Product used for unknown indication
     Dosage: 210 MG/WEEK, DAYS ONE TWO AND THREE, SOLUTION FOR INJECTION/INFUSION
     Route: 042
  3. DIENOGEST\ETHINYL ESTRADIOL [Concomitant]
     Active Substance: DIENOGEST\ETHINYL ESTRADIOL
     Dosage: 1-0-0-0, TABLETS? 1MG / 2MG TABLETS
     Route: 048
  4. LEVOTHYROXINE SODIUM [Concomitant]
     Active Substance: LEVOTHYROXINE SODIUM
     Dosage: 100 UG, 1.5-0-0-0, TABLETS
     Route: 048
  5. GRANISETRON [Concomitant]
     Active Substance: GRANISETRON
     Dosage: 2 MG, ONE TABLET BEFORE AND AFTER CHEMO ON DAY ONE ON DAY TWO TO FOUR JUST BEFORE, TABLETS
     Route: 048
  6. DEXAMETHASONE [Concomitant]
     Active Substance: DEXAMETHASONE
     Dosage: 8 MG, ONE TABLET, TABLETS
     Route: 048
  7. PANTOPRAZOLE [Concomitant]
     Active Substance: PANTOPRAZOLE
     Dosage: 40 MG, 1-0-0-0, TABLETS
     Route: 048
  8. SERTRALINE HYDROCHLORIDE [Concomitant]
     Active Substance: SERTRALINE HYDROCHLORIDE
     Dosage: 50 MG, 2-0-0-0, TABLETS
     Route: 048
  9. FLUPENTIXOL [Concomitant]
     Active Substance: FLUPENTIXOL
     Dosage: 5 MG, 0-0-1-0, TABLETS
     Route: 048
  10. EMEND [Concomitant]
     Active Substance: APREPITANT
     Dosage: 150 MG, ONLY ON DAY ONE BEFORE CHEMO, SOLUTION FOR INJECTION/INFUSION
     Route: 042

REACTIONS (5)
  - Cough [Recovering/Resolving]
  - Dyspnoea [Recovering/Resolving]
  - Dysphagia [Recovering/Resolving]
  - Productive cough [Recovering/Resolving]
  - Mucosal inflammation [Recovering/Resolving]
